FAERS Safety Report 10246660 (Version 16)
Quarter: 2015Q4

REPORT INFORMATION
  Report Type: Spontaneous
  Country: US (occurrence: US)
  Receive Date: 20140619
  Receipt Date: 20151015
  Transmission Date: 20160304
  Serious: Yes (Hospitalization, Disabling, Other)
  Sender: FDA-Public Use
  Company Number: US-SA-2013SA132448

PATIENT
  Age: 58 Year
  Sex: Male
  Weight: 74 kg

DRUGS (46)
  1. PREDNISONE. [Concomitant]
     Active Substance: PREDNISONE
     Indication: SINUSITIS
  2. PERCOCET [Concomitant]
     Active Substance: ACETAMINOPHEN\OXYCODONE HYDROCHLORIDE
  3. OXYCODONE [Concomitant]
     Active Substance: OXYCODONE
  4. MORPHINE [Concomitant]
     Active Substance: MORPHINE
     Route: 042
  5. ZOFRAN [Concomitant]
     Active Substance: ONDANSETRON HYDROCHLORIDE
  6. SUDAFED [Concomitant]
     Active Substance: PSEUDOEPHEDRINE HYDROCHLORIDE
     Route: 048
  7. HEPARIN [Concomitant]
     Active Substance: HEPARIN SODIUM
     Dosage: DOSE:3000 UNIT(S)
     Route: 040
  8. NIASPAN [Concomitant]
     Active Substance: NIACIN
     Route: 048
  9. ANDROGEL [Concomitant]
     Active Substance: TESTOSTERONE
     Route: 061
  10. VALIUM [Concomitant]
     Active Substance: DIAZEPAM
     Indication: ANXIETY
     Route: 048
  11. ISOSORBIDE. [Concomitant]
     Active Substance: ISOSORBIDE
  12. KLONOPIN [Concomitant]
     Active Substance: CLONAZEPAM
     Indication: ANXIETY
     Route: 048
  13. MUCINEX [Concomitant]
     Active Substance: GUAIFENESIN
     Route: 048
  14. ASPIRIN. [Concomitant]
     Active Substance: ASPIRIN
     Route: 048
  15. NITROGLYCERINE [Concomitant]
     Active Substance: NITROGLYCERIN
     Route: 060
  16. FISH OIL [Concomitant]
     Active Substance: FISH OIL
     Route: 048
  17. PLAVIX [Suspect]
     Active Substance: CLOPIDOGREL BISULFATE
     Indication: MYOCARDIAL INFARCTION
     Route: 048
     Dates: start: 200408, end: 2007
  18. VIAGRA [Concomitant]
     Active Substance: SILDENAFIL CITRATE
     Dates: start: 2005, end: 2006
  19. FLONASE [Concomitant]
     Active Substance: FLUTICASONE PROPIONATE
     Indication: HYPERSENSITIVITY
     Route: 045
  20. SINGULAIR [Concomitant]
     Active Substance: MONTELUKAST SODIUM
     Route: 048
  21. TEMAZEPAM. [Concomitant]
     Active Substance: TEMAZEPAM
     Indication: INSOMNIA
     Route: 048
  22. ZESTRIL [Concomitant]
     Active Substance: LISINOPRIL
     Route: 048
  23. LIPITOR [Concomitant]
     Active Substance: ATORVASTATIN CALCIUM
     Route: 048
  24. ADVAIR HFA [Concomitant]
     Active Substance: FLUTICASONE PROPIONATE\SALMETEROL XINAFOATE
  25. ZYRTEC [Concomitant]
     Active Substance: CETIRIZINE HYDROCHLORIDE
     Route: 048
  26. EFFEXOR [Concomitant]
     Active Substance: VENLAFAXINE HYDROCHLORIDE
  27. VYTORIN [Concomitant]
     Active Substance: EZETIMIBE\SIMVASTATIN
  28. COLACE [Concomitant]
     Active Substance: DOCUSATE SODIUM
     Route: 048
  29. TOPROL XL [Concomitant]
     Active Substance: METOPROLOL SUCCINATE
     Route: 048
  30. PROVENTIL [Concomitant]
     Active Substance: ALBUTEROL
  31. ASTELIN [Concomitant]
     Active Substance: AZELASTINE HYDROCHLORIDE
     Route: 045
  32. TRICOR [Concomitant]
     Active Substance: FENOFIBRATE
     Route: 048
  33. PLAVIX [Suspect]
     Active Substance: CLOPIDOGREL BISULFATE
     Indication: STENT PLACEMENT
     Route: 048
     Dates: start: 200408, end: 2007
  34. NEURONTIN [Concomitant]
     Active Substance: GABAPENTIN
  35. RESTORIL [Concomitant]
     Active Substance: TEMAZEPAM
     Route: 048
  36. LOTENSIN [Concomitant]
     Active Substance: BENAZEPRIL HYDROCHLORIDE
     Route: 048
  37. IMDUR [Concomitant]
     Active Substance: ISOSORBIDE MONONITRATE
     Route: 048
  38. DIAZEPAM. [Concomitant]
     Active Substance: DIAZEPAM
     Indication: ANXIETY
     Route: 048
  39. TYLENOL [Concomitant]
     Active Substance: ACETAMINOPHEN
     Indication: PAIN
     Route: 048
  40. NORMAL SALINE [Concomitant]
     Active Substance: SODIUM CHLORIDE
     Route: 042
  41. MIRALAX [Concomitant]
     Active Substance: POLYETHYLENE GLYCOL 3350
     Dosage: POWDER MIX WITH WATER AS NEEDED
  42. OXYCONTIN [Concomitant]
     Active Substance: OXYCODONE HYDROCHLORIDE
     Dosage: FREQUENCY:FIVE TIMES DAILY
  43. ROXICODONE [Concomitant]
     Active Substance: OXYCODONE HYDROCHLORIDE
     Indication: PAIN
     Dosage: EVERY 4-6 HOURS AS NEEDED (MAXIMUM 5/DAY)
  44. LUNESTA [Concomitant]
     Active Substance: ESZOPICLONE
  45. PROTONIX [Concomitant]
     Active Substance: PANTOPRAZOLE SODIUM
  46. VENTOLIN [Concomitant]
     Active Substance: ALBUTEROL SULFATE
     Route: 055

REACTIONS (16)
  - Craniocerebral injury [Unknown]
  - Condition aggravated [Unknown]
  - Insomnia [Not Recovered/Not Resolved]
  - Multiple injuries [Unknown]
  - Social avoidant behaviour [Not Recovered/Not Resolved]
  - Cerebral disorder [Unknown]
  - Anxiety disorder [Unknown]
  - Cerebral haemorrhage [Unknown]
  - Thrombotic thrombocytopenic purpura [Unknown]
  - Subdural haematoma [Recovered/Resolved]
  - Panic attack [Unknown]
  - Amnesia [Not Recovered/Not Resolved]
  - Depression [Not Recovered/Not Resolved]
  - Anhedonia [Not Recovered/Not Resolved]
  - Gastrointestinal haemorrhage [Unknown]
  - Thrombosis [Unknown]

NARRATIVE: CASE EVENT DATE: 2006
